FAERS Safety Report 17872481 (Version 1)
Quarter: 2020Q2

REPORT INFORMATION
  Report Type: Spontaneous
  Country: US (occurrence: US)
  Receive Date: 20200608
  Receipt Date: 20200608
  Transmission Date: 20200714
  Serious: Yes (Hospitalization)
  Sender: FDA-Public Use
  Company Number: US-TRIS PHARMA, INC.-20US008968

PATIENT

DRUGS (3)
  1. BUSPIRONE [Concomitant]
     Active Substance: BUSPIRONE HYDROCHLORIDE
     Indication: PRODUCT USED FOR UNKNOWN INDICATION
     Dosage: 52.5 MILLIGRAM, MORNING
     Route: 065
  2. NEXICLON XR [Suspect]
     Active Substance: CLONIDINE
     Dosage: 02 MILLIGRAM, BEDTIME
     Route: 065
  3. NEXICLON XR [Suspect]
     Active Substance: CLONIDINE
     Indication: PRODUCT USED FOR UNKNOWN INDICATION
     Dosage: 1.58 MILLIGRAM, BEDTIME
     Route: 065

REACTIONS (8)
  - Hypotension [Recovered/Resolved]
  - Toxicity to various agents [Unknown]
  - Sedation [Recovered/Resolved]
  - Overdose [Unknown]
  - Product preparation error [Unknown]
  - Somnolence [Recovered/Resolved]
  - Depressed level of consciousness [Recovered/Resolved]
  - Bradycardia [Recovered/Resolved]
